FAERS Safety Report 25622388 (Version 2)
Quarter: 2025Q3

REPORT INFORMATION
  Report Type: Report from Study
  Country: US (occurrence: US)
  Receive Date: 20250730
  Receipt Date: 20250804
  Transmission Date: 20251021
  Serious: No
  Sender: DAIICHI
  Company Number: US-DAIICHI SANKYO, INC.-DS-2025-154503-USAA

PATIENT
  Sex: Female

DRUGS (2)
  1. PEXIDARTINIB [Suspect]
     Active Substance: PEXIDARTINIB
     Indication: Neoplasm
     Dosage: 250 MG, QD
     Route: 048
     Dates: start: 20250630
  2. PEXIDARTINIB [Suspect]
     Active Substance: PEXIDARTINIB
     Route: 065

REACTIONS (3)
  - Coronavirus infection [Not Recovered/Not Resolved]
  - Decreased appetite [Not Recovered/Not Resolved]
  - Hepatic enzyme increased [Not Recovered/Not Resolved]
